FAERS Safety Report 18159522 (Version 1)
Quarter: 2020Q3

REPORT INFORMATION
  Report Type: Report from Study
  Country: TH (occurrence: TH)
  Receive Date: 20200817
  Receipt Date: 20200817
  Transmission Date: 20201103
  Serious: Yes (Death)
  Sender: FDA-Public Use
  Company Number: TH-EISAI MEDICAL RESEARCH-EC-2020-076892

PATIENT
  Age: 67 Year
  Sex: Male

DRUGS (1)
  1. LENVIMA [Suspect]
     Active Substance: LENVATINIB
     Indication: HEPATOCELLULAR CARCINOMA
     Route: 048
     Dates: start: 20200627

REACTIONS (3)
  - Pyrexia [Recovered/Resolved]
  - Yellow skin [Not Recovered/Not Resolved]
  - Gastric haemorrhage [Fatal]

NARRATIVE: CASE EVENT DATE: 20200629
